FAERS Safety Report 25398342 (Version 2)
Quarter: 2025Q3

REPORT INFORMATION
  Report Type: Spontaneous
  Country: US (occurrence: US)
  Receive Date: 20250604
  Receipt Date: 20250701
  Transmission Date: 20251021
  Serious: No
  Sender: SANOFI AVENTIS
  Company Number: US-SA-2025SA158067

PATIENT
  Age: 55 Year
  Sex: Female

DRUGS (7)
  1. TZIELD [Suspect]
     Active Substance: TEPLIZUMAB-MZWV
     Indication: Diabetes prophylaxis
     Route: 042
     Dates: start: 20250528, end: 20250528
  2. TZIELD [Suspect]
     Active Substance: TEPLIZUMAB-MZWV
     Route: 042
     Dates: start: 20250529, end: 20250529
  3. TZIELD [Suspect]
     Active Substance: TEPLIZUMAB-MZWV
     Route: 042
     Dates: start: 20250531, end: 20250531
  4. TZIELD [Suspect]
     Active Substance: TEPLIZUMAB-MZWV
     Route: 042
     Dates: start: 20250601, end: 20250601
  5. TZIELD [Suspect]
     Active Substance: TEPLIZUMAB-MZWV
     Dosage: 2163 UG, QD
     Route: 042
     Dates: start: 20250602, end: 20250611
  6. ACETAMINOPHEN [Concomitant]
     Active Substance: ACETAMINOPHEN
     Indication: Premedication
     Dates: start: 20250528, end: 20250604
  7. DIPHENHYDRAMINE [Concomitant]
     Active Substance: DIPHENHYDRAMINE
     Indication: Premedication
     Dates: start: 20250528, end: 20250611

REACTIONS (1)
  - Hepatic enzyme increased [Recovering/Resolving]

NARRATIVE: CASE EVENT DATE: 20250530
